FAERS Safety Report 4636078-X (Version None)
Quarter: 2005Q2

REPORT INFORMATION
  Report Type: 
  Country: None (occurrence: None)
  Receive Date: 20050325
  Receipt Date: 20050125
  Transmission Date: 20051028
  Serious: No
  Sender: FDA-Public Use
  Company Number: USA040772828

PATIENT
  Age: 77 Year
  Sex: Female
  Weight: 52 kg

DRUGS (14)
  1. FORTEO [Suspect]
     Indication: OSTEOPOROSIS
     Dosage: 20 UG DAY
     Dates: start: 20040101
  2. ZOCOR (SIMVASTATIN RATIOPHARM) [Concomitant]
  3. ZIAC [Concomitant]
  4. LEXAPRO [Concomitant]
  5. VIT C TAB [Concomitant]
  6. VITAMIN E [Concomitant]
  7. VITAMIN B-12 [Concomitant]
  8. VITAMIN B6 [Concomitant]
  9. CALCIUM GLUCONATE [Concomitant]
  10. FOLIC ACID [Concomitant]
  11. LYCOPENE (LYCOPENE) [Concomitant]
  12. AMBIEN [Concomitant]
  13. DICYCLOMINE [Concomitant]
  14. SYNTHROID [Concomitant]

REACTIONS (2)
  - DIPLOPIA [None]
  - GASTRIC DISORDER [None]
